FAERS Safety Report 8769708 (Version 1)
Quarter: 2012Q4

REPORT INFORMATION
  Report Type: 
  Country: US (occurrence: US)
  Receive Date: 20120905
  Receipt Date: 20120905
  Transmission Date: 20130627
  Serious: Yes (Death)
  Sender: FDA-Public Use
  Company Number: US-MYLANLABS-2012S1017813

PATIENT
  Age: 27 Year
  Sex: Male

DRUGS (4)
  1. IBOGAINE [Suspect]
     Dosage: Powdered root bark (7.2% ibogaine, 0.6% ibogamine).
     Route: 048
     Dates: end: 2006
  2. METHADONE [Suspect]
     Route: 065
     Dates: end: 2006
  3. DIAZEPAM [Suspect]
     Route: 065
     Dates: end: 2006
  4. TEMAZEPAM [Suspect]
     Route: 065
     Dates: end: 2006

REACTIONS (2)
  - Toxicity to various agents [Fatal]
  - Overdose [Fatal]
